FAERS Safety Report 6872953-3 (Version None)
Quarter: 2010Q3

REPORT INFORMATION
  Report Type: 
  Country: None (occurrence: None)
  Receive Date: 20100721
  Receipt Date: 20100706
  Transmission Date: 20110219
  Serious: Yes (Death)
  Sender: FDA-Public Use
  Company Number: AE 2010-145

PATIENT
  Age: 60 Year
  Sex: Female
  Weight: 39.6897 kg

DRUGS (2)
  1. FAZACLO ODT [Suspect]
     Indication: BIPOLAR DISORDER
     Dosage: 600 MG DAILY PO
     Route: 048
     Dates: start: 20100423, end: 20100702
  2. FAZACLO ODT [Suspect]
     Indication: PSYCHOTIC DISORDER
     Dosage: 600 MG DAILY PO
     Route: 048
     Dates: start: 20100423, end: 20100702

REACTIONS (1)
  - MALNUTRITION [None]
